FAERS Safety Report 9300671 (Version 1)
Quarter: 2013Q2

REPORT INFORMATION
  Report Type: Spontaneous
  Country: US (occurrence: None)
  Receive Date: 20130520
  Receipt Date: 20130520
  Transmission Date: 20140414
  Serious: Yes (Other)
  Sender: FDA-Public Use
  Company Number: None

PATIENT
  Sex: 0

DRUGS (2)
  1. GRANUFLO [Suspect]
  2. NATURELITE [Suspect]

REACTIONS (14)
  - Asthenia [None]
  - Arthralgia [None]
  - Tremor [None]
  - Hypoaesthesia [None]
  - Dysarthria [None]
  - Headache [None]
  - Blood pressure decreased [None]
  - Peripheral coldness [None]
  - Dyskinesia [None]
  - Dizziness [None]
  - Fall [None]
  - Fatigue [None]
  - Aphasia [None]
  - Product quality issue [None]
